FAERS Safety Report 9779101 (Version 1)
Quarter: 2013Q4

REPORT INFORMATION
  Report Type: Spontaneous
  Country: US (occurrence: US)
  Receive Date: 20131223
  Receipt Date: 20131223
  Transmission Date: 20140711
  Serious: Yes (Other)
  Sender: FDA-Public Use
  Company Number: US-ELI_LILLY_AND_COMPANY-US201312005750

PATIENT
  Sex: Female

DRUGS (4)
  1. HUMULIN NPH [Suspect]
     Indication: TYPE 1 DIABETES MELLITUS
     Dosage: UNK
     Route: 065
  2. HUMULIN NPH [Suspect]
     Indication: TYPE 1 DIABETES MELLITUS
     Dosage: 45 U, UNKNOWN
     Route: 065
  3. HUMULIN NPH [Suspect]
     Dosage: 40 U, SINGLE
     Route: 065
  4. INSULIN HUMAN [Suspect]
     Indication: TYPE 1 DIABETES MELLITUS
     Dosage: UNK
     Route: 065

REACTIONS (5)
  - Blood glucose decreased [Unknown]
  - Fall [Unknown]
  - Crushing injury of trunk [Recovered/Resolved]
  - Arthritis [Unknown]
  - Incorrect dose administered [Recovered/Resolved]
